FAERS Safety Report 11977801 (Version 1)
Quarter: 2016Q1

REPORT INFORMATION
  Report Type: Spontaneous
  Country: None (occurrence: GB)
  Receive Date: 20160129
  Receipt Date: 20160129
  Transmission Date: 20160526
  Serious: Yes (Death)
  Sender: FDA-Public Use
  Company Number: GB-MEDAC PHARMA, INC.-1047093

PATIENT
  Age: 66 Year
  Sex: Male
  Weight: 90 kg

DRUGS (9)
  1. ASPIRIN. [Concomitant]
     Active Substance: ASPIRIN
  2. LEFLUNOMIDE. [Suspect]
     Active Substance: LEFLUNOMIDE
  3. DULOXETINE. [Concomitant]
     Active Substance: DULOXETINE
  4. LOSARTAN POTASSIUM. [Concomitant]
     Active Substance: LOSARTAN POTASSIUM
  5. METHOTREXATE [Suspect]
     Active Substance: METHOTREXATE
     Indication: RHEUMATOID ARTHRITIS
  6. METFORMIN [Suspect]
     Active Substance: METFORMIN HYDROCHLORIDE
  7. FOLIC ACID. [Concomitant]
     Active Substance: FOLIC ACID
  8. FUROSEMIDE. [Concomitant]
     Active Substance: FUROSEMIDE
  9. INSULIN HUMAN RECOMBINANT [Concomitant]

REACTIONS (8)
  - Death [Fatal]
  - Malaise [Fatal]
  - Chest pain [Fatal]
  - Cardio-respiratory arrest [Fatal]
  - Lactic acidosis [Fatal]
  - Cardiogenic shock [Fatal]
  - Multiple organ dysfunction syndrome [None]
  - Septic shock [Fatal]

NARRATIVE: CASE EVENT DATE: 20151009
